FAERS Safety Report 14651228 (Version 1)
Quarter: 2018Q1

REPORT INFORMATION
  Report Type: Spontaneous
  Country: GB (occurrence: GB)
  Receive Date: 20180316
  Receipt Date: 20180316
  Transmission Date: 20180509
  Serious: Yes (Other)
  Sender: FDA-Public Use
  Company Number: GB-BRISTOL-MYERS SQUIBB COMPANY-BMS-2018-023188

PATIENT
  Age: 75 Year
  Sex: Male
  Weight: 93.88 kg

DRUGS (1)
  1. ELIQUIS [Suspect]
     Active Substance: APIXABAN
     Indication: CEREBROVASCULAR ACCIDENT PROPHYLAXIS
     Dosage: 10 MG, DAILY
     Route: 048
     Dates: start: 20180202, end: 20180225

REACTIONS (7)
  - Atrial fibrillation [Recovered/Resolved]
  - Aggression [Unknown]
  - Lethargy [Recovered/Resolved]
  - Dizziness postural [Recovered/Resolved]
  - Blood pressure increased [Recovered/Resolved]
  - Cognitive disorder [Recovered/Resolved]
  - Ocular hyperaemia [Recovered/Resolved]

NARRATIVE: CASE EVENT DATE: 20180202
